FAERS Safety Report 7466154-8 (Version None)
Quarter: 2011Q2

REPORT INFORMATION
  Report Type: 
  Country: None (occurrence: None)
  Receive Date: 20110509
  Receipt Date: 20110324
  Transmission Date: 20111010
  Serious: No
  Sender: FDA-Public Use
  Company Number: US-BAUSCH-2011BL001910

PATIENT
  Age: 77 Year
  Sex: Female

DRUGS (7)
  1. MULTI-VITAMINS [Concomitant]
     Indication: VITAMIN SUPPLEMENTATION
     Route: 048
     Dates: end: 20110201
  2. PRESERVISION AREDS SOFT GELS [Concomitant]
     Indication: VITAMIN SUPPLEMENTATION
     Route: 048
     Dates: end: 20110201
  3. FISH OIL [Concomitant]
     Indication: MEDICAL DIET
     Route: 048
     Dates: end: 20110201
  4. TYLENOL ^JOHNSON + JOHNSON^ [Concomitant]
     Indication: PAIN
     Route: 048
  5. DORZOLAMIDE HYDROCHLORIDE AND TIMOLOL MALEATE [Suspect]
     Indication: GLAUCOMA
     Route: 047
     Dates: start: 20110221, end: 20110317
  6. COUMADIN [Concomitant]
     Indication: POSTOPERATIVE CARE
     Route: 048
     Dates: start: 20110224, end: 20110317
  7. MECLIZINE [Concomitant]
     Indication: VERTIGO
     Route: 048

REACTIONS (6)
  - VISION BLURRED [None]
  - URINARY TRACT INFECTION [None]
  - VERTIGO [None]
  - WEIGHT DECREASED [None]
  - DEPRESSION [None]
  - TINNITUS [None]
